FAERS Safety Report 9331624 (Version 2)
Quarter: 2013Q3

REPORT INFORMATION
  Report Type: Spontaneous
  Country: IT (occurrence: IT)
  Receive Date: 20130605
  Receipt Date: 20130704
  Transmission Date: 20140515
  Serious: Yes (Death)
  Sender: FDA-Public Use
  Company Number: IT-PFIZER INC-2013168560

PATIENT
  Age: 57 Year
  Sex: Female

DRUGS (2)
  1. XANAX [Suspect]
     Dosage: UNK
  2. KETAZOLAM [Interacting]
     Dosage: UNK

REACTIONS (3)
  - Overdose [Fatal]
  - Alcohol interaction [Fatal]
  - Cardio-respiratory arrest [Fatal]
